FAERS Safety Report 9177838 (Version 1)
Quarter: 2012Q4

REPORT INFORMATION
  Report Type: 
  Country: US (occurrence: US)
  Receive Date: 20121012
  Receipt Date: 20121012
  Transmission Date: 20130627
  Serious: Yes (Other)
  Sender: FDA-Public Use
  Company Number: US-RB-016505-09

PATIENT
  Age: 23 None
  Sex: Female

DRUGS (3)
  1. SUBOXONE [Suspect]
     Indication: DRUG DEPENDENCE
     Dosage: Unknown unit dose
     Route: 060
     Dates: start: 20090516, end: 20090518
  2. SUBOXONE [Suspect]
     Dosage: Unknown unit dose
     Route: 060
     Dates: start: 20090519, end: 20090520
  3. SUBOXONE [Suspect]
     Dosage: Unknown unit dose
     Route: 060
     Dates: start: 20090521, end: 20090522

REACTIONS (2)
  - Exposure during pregnancy [Recovered/Resolved]
  - Abortion spontaneous [Recovered/Resolved]
